FAERS Safety Report 16639169 (Version 4)
Quarter: 2019Q4

REPORT INFORMATION
  Report Type: Report from Study
  Country: CA (occurrence: CA)
  Receive Date: 20190726
  Receipt Date: 20191127
  Transmission Date: 20200122
  Serious: Yes (Hospitalization, Other)
  Sender: FDA-Public Use
  Company Number: CA-BRISTOL-MYERS SQUIBB COMPANY-BMS-2019-043882

PATIENT
  Age: 69 Year
  Sex: Male

DRUGS (1)
  1. ABATACEPT [Suspect]
     Active Substance: ABATACEPT
     Indication: PRODUCT USED FOR UNKNOWN INDICATION
     Dosage: 750 MILLIGRAM, Q4WK
     Route: 042
     Dates: start: 20170717

REACTIONS (8)
  - Rib fracture [Unknown]
  - Fall [Unknown]
  - Mobility decreased [Unknown]
  - Intervertebral disc protrusion [Unknown]
  - Scapula fracture [Unknown]
  - Localised infection [Unknown]
  - Spondylolisthesis [Unknown]
  - Product dose omission [Unknown]

NARRATIVE: CASE EVENT DATE: 201904
